FAERS Safety Report 20591935 (Version 2)
Quarter: 2022Q1

REPORT INFORMATION
  Report Type: Spontaneous
  Country: US (occurrence: US)
  Receive Date: 20220314
  Receipt Date: 20220331
  Transmission Date: 20220423
  Serious: Yes (Hospitalization)
  Sender: FDA-Public Use
  Company Number: US-TEVA-2022-US-2016791

PATIENT
  Age: 21 Year
  Sex: Male

DRUGS (4)
  1. ESTRADIOL [Suspect]
     Active Substance: ESTRADIOL
     Indication: Transgender hormonal therapy
     Route: 065
  2. PREMARIN [Suspect]
     Active Substance: ESTROGENS, CONJUGATED
     Indication: Transgender hormonal therapy
     Route: 065
  3. SUPPRELIN [Suspect]
     Active Substance: HISTRELIN ACETATE
     Indication: Transgender hormonal therapy
     Route: 065
  4. ESTROGENS [Suspect]
     Active Substance: ESTROGENS
     Indication: Transgender hormonal therapy
     Route: 065

REACTIONS (1)
  - Breast mass [Recovered/Resolved]
